FAERS Safety Report 7490354-4 (Version None)
Quarter: 2011Q2

REPORT INFORMATION
  Report Type: 
  Country: None (occurrence: None)
  Receive Date: 20110519
  Receipt Date: 20110506
  Transmission Date: 20111010
  Serious: Yes (Other)
  Sender: FDA-Public Use
  Company Number: US-PFIZER INC-HQWYE237409MAY06

PATIENT
  Sex: Female
  Weight: 54 kg

DRUGS (19)
  1. HYOSCYAMINE [Concomitant]
     Indication: MUSCLE SPASMS
     Dosage: UNK
     Dates: start: 20000101
  2. ACETAMINOPHEN AND HYDROCODONE BITARTRATE [Concomitant]
     Indication: PAIN
     Dosage: UNK
     Dates: start: 20000901
  3. OGEN [Suspect]
     Indication: HORMONE REPLACEMENT THERAPY
     Dosage: 0.625 MG, UNK
     Route: 048
     Dates: start: 19950101, end: 19990101
  4. ESTROPIPATE [Suspect]
     Indication: HORMONE REPLACEMENT THERAPY
     Dosage: 0.625 MG, UNK
     Dates: start: 19970101, end: 19980101
  5. ULTRAM [Concomitant]
     Indication: PAIN
     Dosage: UNK
     Dates: start: 19981201
  6. VICODIN [Concomitant]
     Indication: PAIN
     Dosage: UNK
     Dates: start: 20000101, end: 20090101
  7. TRAMADOL [Concomitant]
     Indication: PAIN
     Dosage: UNK
     Dates: start: 20020701, end: 20101201
  8. MEDROXYPROGESTERONE ACETATE [Suspect]
     Indication: HORMONE REPLACEMENT THERAPY
     Dosage: UNK
     Route: 048
     Dates: start: 19960101, end: 20030601
  9. MEDROXYPROGESTERONE ACETATE [Suspect]
     Dosage: UNK
     Dates: start: 19960101, end: 20030601
  10. PROVERA [Suspect]
     Indication: HORMONE REPLACEMENT THERAPY
     Dosage: 2.5 MG, UNK
     Route: 048
     Dates: start: 19950101, end: 20020101
  11. REGLAN [Concomitant]
     Indication: GASTRIC ULCER
     Dosage: UNK
     Dates: end: 20090801
  12. PAXIL [Concomitant]
     Indication: DEPRESSION
     Dosage: UNK
     Dates: start: 19981101
  13. ACETYLSALICYLIC ACID [Concomitant]
     Indication: MIGRAINE
     Dosage: UNK
  14. CYCLOBENZAPRINE [Concomitant]
     Indication: MUSCLE RELAXANT THERAPY
     Dosage: UNK
     Dates: start: 19991001
  15. SPIRONOLACTONE [Concomitant]
     Indication: ASCITES
     Dosage: UNK
     Dates: start: 19991001, end: 20060401
  16. CYCRIN [Suspect]
     Indication: HORMONE REPLACEMENT THERAPY
     Dosage: 2.5 MG, UNK
     Dates: start: 19950101, end: 19990101
  17. VISTARIL [Concomitant]
     Indication: NAUSEA
     Dosage: UNK
     Dates: start: 20010801
  18. PREMPRO [Suspect]
     Indication: HORMONE REPLACEMENT THERAPY
     Dosage: 0.625/2.5 MG
     Route: 048
     Dates: start: 19990101, end: 20030101
  19. INFED [Concomitant]
     Indication: MINERAL SUPPLEMENTATION
     Dosage: UNK
     Dates: start: 19970801, end: 20061101

REACTIONS (1)
  - BREAST CANCER FEMALE [None]
